FAERS Safety Report 11376966 (Version 1)
Quarter: 2015Q3

REPORT INFORMATION
  Report Type: Spontaneous
  Country: US (occurrence: US)
  Receive Date: 20150813
  Receipt Date: 20150813
  Transmission Date: 20151125
  Serious: Yes (Other)
  Sender: FDA-Public Use
  Company Number: US-TEVA-585969USA

PATIENT
  Age: 72 Year
  Sex: Female
  Weight: 64.47 kg

DRUGS (13)
  1. METOPROLOL [Concomitant]
     Active Substance: METOPROLOL
     Indication: HYPERTENSION
  2. COPAXONE [Suspect]
     Active Substance: GLATIRAMER ACETATE
     Indication: MULTIPLE SCLEROSIS
     Dosage: 17.1429 MILLIGRAM DAILY;
     Route: 065
     Dates: start: 2015
  3. VESICAR [Concomitant]
     Indication: POLLAKIURIA
  4. VESICAR [Concomitant]
     Indication: MICTURITION URGENCY
  5. ASPIRIN. [Concomitant]
     Active Substance: ASPIRIN
  6. LOSARTAN. [Concomitant]
     Active Substance: LOSARTAN
     Indication: HYPERTENSION
  7. SIMVASTATIN. [Concomitant]
     Active Substance: SIMVASTATIN
     Indication: BLOOD CHOLESTEROL INCREASED
  8. COPAXONE [Suspect]
     Active Substance: GLATIRAMER ACETATE
     Route: 065
     Dates: start: 2004
  9. CALCIUM SUPPLEMENT [Concomitant]
     Active Substance: CALCIUM
  10. FLOVENT HFA [Concomitant]
     Active Substance: FLUTICASONE PROPIONATE
     Indication: ASTHMA
  11. INDAPINIDE [Concomitant]
  12. NITROFURANTOIN. [Concomitant]
     Active Substance: NITROFURANTOIN
  13. MULTIVITAMIN [Concomitant]
     Active Substance: VITAMINS

REACTIONS (8)
  - Fatigue [Unknown]
  - Cerebrovascular accident [Unknown]
  - Drug effect decreased [Unknown]
  - Feeling hot [Unknown]
  - Transient ischaemic attack [Unknown]
  - Asthenia [Unknown]
  - Gait deviation [Unknown]
  - Thinking abnormal [Unknown]

NARRATIVE: CASE EVENT DATE: 20140609
